FAERS Safety Report 21318939 (Version 1)
Quarter: 2022Q3

REPORT INFORMATION
  Report Type: Spontaneous
  Country: US (occurrence: US)
  Receive Date: 20220911
  Receipt Date: 20220911
  Transmission Date: 20221027
  Serious: No
  Sender: FDA-Public Use
  Company Number: US-SA-SAC20220829002294

PATIENT
  Age: 76 Year
  Sex: Male

DRUGS (1)
  1. CABLIVI [Suspect]
     Active Substance: CAPLACIZUMAB-YHDP
     Indication: Vasculitis necrotising
     Dosage: 11MG, QD
     Route: 058
     Dates: start: 20220813

REACTIONS (4)
  - Hypotension [Unknown]
  - Transfusion [Unknown]
  - Epistaxis [Unknown]
  - Product use in unapproved indication [Unknown]
